FAERS Safety Report 15538030 (Version 1)
Quarter: 2018Q4

REPORT INFORMATION
  Report Type: Report from Study
  Country: KR (occurrence: KR)
  Receive Date: 20181022
  Receipt Date: 20181022
  Transmission Date: 20190205
  Serious: Yes (Hospitalization)
  Sender: FDA-Public Use
  Company Number: KR-BRISTOL-MYERS SQUIBB COMPANY-BMS-2018-094159

PATIENT
  Age: 74 Year
  Sex: Female

DRUGS (6)
  1. TALION                             /01587402/ [Concomitant]
     Active Substance: BEPOTASTINE BESILATE
     Indication: RASH
     Dosage: UNK, QD (2 TABS)
     Route: 048
     Dates: start: 20170418, end: 20170430
  2. DACLATASVIR DIHYDROCHLORIDE [Suspect]
     Active Substance: DACLATASVIR DIHYDROCHLORIDE
     Indication: HEPATITIS C
     Route: 065
  3. TYLENOL [Concomitant]
     Active Substance: ACETAMINOPHEN
     Indication: PYREXIA
     Dosage: 3 TABS
     Route: 048
     Dates: start: 20170417, end: 20170430
  4. LETIZIN [Concomitant]
     Indication: RASH
     Dosage: UNK, QD (1 TAB)
     Route: 048
     Dates: start: 20170418, end: 20170420
  5. ASUNAPREVIR [Suspect]
     Active Substance: ASUNAPREVIR
     Indication: HEPATITIS C
     Route: 065
  6. CEFTRIAXONE. [Concomitant]
     Active Substance: CEFTRIAXONE
     Indication: PYREXIA
     Dosage: 2 G, UNK
     Route: 042
     Dates: start: 20170420, end: 20170423

REACTIONS (2)
  - Rash [Recovered/Resolved]
  - Pyrexia [Recovered/Resolved]

NARRATIVE: CASE EVENT DATE: 20170414
